FAERS Safety Report 5317105-3 (Version None)
Quarter: 2007Q2

REPORT INFORMATION
  Report Type: 
  Country: None (occurrence: None)
  Receive Date: 20070504
  Receipt Date: 20070426
  Transmission Date: 20071010
  Serious: Yes (Other)
  Sender: FDA-Public Use
  Company Number: GB-ROCHE-495557

PATIENT
  Age: 49 Year
  Sex: Female
  Weight: 97 kg

DRUGS (3)
  1. ORLISTAT [Suspect]
     Indication: OBESITY
     Route: 048
     Dates: start: 20070312, end: 20070315
  2. PENICILLIN V [Concomitant]
     Dates: start: 20070202
  3. SALBUTAMOL [Concomitant]
     Indication: ASTHMA
     Dates: start: 20001006

REACTIONS (1)
  - PALPITATIONS [None]
